FAERS Safety Report 7526073-5 (Version None)
Quarter: 2011Q2

REPORT INFORMATION
  Report Type: 
  Country: None (occurrence: None)
  Receive Date: 20110606
  Receipt Date: 20110603
  Transmission Date: 20111010
  Serious: Yes (Hospitalization, Other)
  Sender: FDA-Public Use
  Company Number: US-BRISTOL-MYERS SQUIBB COMPANY-15380678

PATIENT
  Age: 71 Year
  Sex: Female
  Weight: 91 kg

DRUGS (11)
  1. ONGLYZA [Suspect]
     Indication: TYPE 2 DIABETES MELLITUS
     Dosage: INTERRUPTED ON 11-AUG-2010.
     Route: 048
     Dates: start: 20100630, end: 20101113
  2. LANTUS [Concomitant]
     Dosage: 1DF:30UNITS 100UNITS/ML(3ML), AT BEDTIME.
     Route: 058
  3. OMEPRAZOLE [Concomitant]
     Dosage: 20MG 1DF:1CAPSULE (DR)
     Route: 048
  4. POTASSIUM CHLORIDE [Concomitant]
     Dosage: TABS SUS.REL.PARTICLE/CRYSTAL 20MEQ,1TABS EVERY MOR
     Route: 048
  5. CRESTOR [Suspect]
     Indication: HYPERLIPIDAEMIA
     Dosage: STARTED PRIOR TO 16NOV2004;INTPTD ON 08NOV10,STOPPED FOR EVENTS AND RESTARTED AGAIN.
     Route: 048
  6. NOVOLOG [Concomitant]
     Dosage: FLEXPEN 1DF:10UNITS INSULIN PEN 100UNITS/ML, 1HR BEFORE MEALS.
     Route: 058
  7. ASPIRIN [Concomitant]
     Dosage: 1DF= 81MG TABLET AS DIRECTED.
  8. ATENOLOL [Concomitant]
     Dosage: 50MG TABLET; 1DF=1/2 TABLET.
     Route: 048
  9. SYNTHROID [Concomitant]
     Dosage: 1TABS
     Route: 048
  10. INSULIN [Concomitant]
     Route: 058
  11. LASIX [Concomitant]
     Indication: SWELLING
     Dosage: TABS,EVERY MORNING
     Route: 048

REACTIONS (7)
  - DIABETIC KETOACIDOSIS [None]
  - RHABDOMYOLYSIS [None]
  - PANCREATITIS [None]
  - HYPOPHOSPHATAEMIA [None]
  - RENAL FAILURE ACUTE [None]
  - HYPERGLYCAEMIA [None]
  - URINARY TRACT INFECTION STAPHYLOCOCCAL [None]
